FAERS Safety Report 24878127 (Version 1)
Quarter: 2025Q1

REPORT INFORMATION
  Report Type: Spontaneous
  Country: US (occurrence: None)
  Receive Date: 20250123
  Receipt Date: 20250123
  Transmission Date: 20250409
  Serious: No
  Sender: FDA-CTU
  Company Number: None

PATIENT
  Sex: Male
  Weight: 107 kg

DRUGS (3)
  1. LOMUSTINE [Suspect]
     Active Substance: LOMUSTINE
  2. PROCARBAZINE [Suspect]
     Active Substance: PROCARBAZINE
  3. VINCRISTINE SULFATE [Suspect]
     Active Substance: VINCRISTINE SULFATE

REACTIONS (9)
  - Vision blurred [None]
  - Visual impairment [None]
  - Astigmatism [None]
  - Visual acuity reduced [None]
  - Periorbital swelling [None]
  - Lacrimation increased [None]
  - Photophobia [None]
  - Therapy cessation [None]
  - Optic neuropathy [None]

NARRATIVE: CASE EVENT DATE: 20250109
